FAERS Safety Report 9834379 (Version 2)
Quarter: 2014Q1

REPORT INFORMATION
  Report Type: Spontaneous
  Country: CA (occurrence: CA)
  Receive Date: 20140122
  Receipt Date: 20140122
  Transmission Date: 20141002
  Serious: Yes (Other)
  Sender: FDA-Public Use
  Company Number: CA-009507513-1305CAN006435

PATIENT
  Age: 59 Year
  Sex: Male

DRUGS (2)
  1. FOSAMAX [Suspect]
     Indication: PRODUCT USED FOR UNKNOWN INDICATION
     Route: 065
  2. ACTONEL [Suspect]
     Dosage: UNK
     Route: 048

REACTIONS (3)
  - Osteonecrosis of jaw [Unknown]
  - Neutrophil chemotaxis abnormal [Unknown]
  - Neutrophil function test abnormal [Unknown]
